FAERS Safety Report 15036255 (Version 1)
Quarter: 2018Q2

REPORT INFORMATION
  Report Type: Spontaneous
  Country: DE (occurrence: DE)
  Receive Date: 20180620
  Receipt Date: 20180620
  Transmission Date: 20180711
  Serious: Yes (Other)
  Sender: FDA-Public Use
  Company Number: DE-JNJFOC-20180622221

PATIENT
  Age: 38 Year
  Sex: Female
  Weight: 80 kg

DRUGS (8)
  1. JODTHYROX [Concomitant]
     Active Substance: LEVOTHYROXINE SODIUM\POTASSIUM IODIDE
     Indication: HYPOTHYROIDISM
     Dosage: 25 MCG/12.5; 1 TRIMESTER (0 -39.2 GESTATIONAL WEEK)
     Route: 048
     Dates: start: 20170128, end: 20171030
  2. TAVOR [Concomitant]
     Indication: OBSESSIVE-COMPULSIVE DISORDER
     Dosage: 5 MG/3 MG; 2 TRIMESTER (15.2 -39.2 GESTATIONAL WEEK)
     Route: 048
  3. CITALOPRAM [Concomitant]
     Active Substance: CITALOPRAM HYDROBROMIDE
     Indication: OBSESSIVE-COMPULSIVE DISORDER
     Dosage: 1 TRIMESTER (0-39.2 GESTATIONAL WEEK)
     Route: 048
     Dates: start: 20170128, end: 20171030
  4. QUETIAPINE. [Suspect]
     Active Substance: QUETIAPINE
     Indication: OBSESSIVE-COMPULSIVE DISORDER
     Dosage: 2 TRIMESTER (15.2 TO 39.2 GESTATIONAL WEEK)
     Route: 048
  5. DIAZEPAM. [Concomitant]
     Active Substance: DIAZEPAM
     Indication: OBSESSIVE-COMPULSIVE DISORDER
     Dosage: 3 TRIMESTER (28.3 -32.6 GESTATIONAL WEEK)
     Route: 048
  6. QUETIAPINE. [Suspect]
     Active Substance: QUETIAPINE
     Indication: OBSESSIVE-COMPULSIVE DISORDER
     Dosage: 4 WEEKS BEFORE DELIVERY
     Route: 048
  7. RISPERIDONE. [Suspect]
     Active Substance: RISPERIDONE
     Indication: OBSESSIVE-COMPULSIVE DISORDER
     Dosage: 2 TRIMESTER (15.2 TO 39.2 GESTATIONAL WEEK)
     Route: 048
  8. HUMINSULIN BASAL [Concomitant]
     Active Substance: INSULIN NOS
     Indication: GESTATIONAL DIABETES
     Dosage: 2 TRIMESTER (25 - 39.2 GESTATIONAL WEEK)
     Route: 058

REACTIONS (4)
  - Product use in unapproved indication [Unknown]
  - Off label use [Unknown]
  - Gestational diabetes [Recovered/Resolved]
  - Exposure during pregnancy [Unknown]
